FAERS Safety Report 7676807-4 (Version None)
Quarter: 2011Q3

REPORT INFORMATION
  Report Type: 
  Country: None (occurrence: None)
  Receive Date: 20110811
  Receipt Date: 20110804
  Transmission Date: 20111222
  Serious: Yes (Other)
  Sender: FDA-Public Use
  Company Number: GB-TEVA-295871ISR

PATIENT
  Sex: Female
  Weight: 76 kg

DRUGS (4)
  1. PRAMIPEXOLE DIHYDROCHLORIDE [Concomitant]
     Dosage: 1.5 MILLIGRAM;
     Route: 048
     Dates: start: 20100401
  2. SINEMET [Concomitant]
     Dosage: 25/100 MG
     Route: 048
     Dates: start: 20100401
  3. AZILECT [Suspect]
     Indication: PARKINSON'S DISEASE
     Dosage: 1 MILLIGRAM;
     Route: 048
     Dates: start: 20101101
  4. MADOPAR [Concomitant]
     Dosage: 12.5/50 MG
     Route: 048
     Dates: start: 20100401

REACTIONS (3)
  - ERYTHEMA NODOSUM [None]
  - RASH [None]
  - ARTHRALGIA [None]
